FAERS Safety Report 10195840 (Version 2)
Quarter: 2015Q1

REPORT INFORMATION
  Report Type: Spontaneous
  Country: US (occurrence: None)
  Receive Date: 20140521
  Receipt Date: 20150212
  Transmission Date: 20150720
  Serious: Yes (Death, Other)
  Sender: FDA-Public Use
  Company Number: KAD201402-000181

PATIENT
  Sex: Female

DRUGS (1)
  1. RIBAVIRIN (RIBAVIRIN) [Suspect]
     Active Substance: RIBAVIRIN
     Indication: RESPIRATORY SYNCYTIAL VIRUS INFECTION
     Dosage: TWICE DAILY ORAL
     Route: 048

REACTIONS (6)
  - Haemolytic anaemia [None]
  - Lactic acidosis [None]
  - Acute leukaemia [None]
  - Off label use [None]
  - Graft versus host disease in gastrointestinal tract [None]
  - Disease complication [None]
